FAERS Safety Report 11854237 (Version 1)
Quarter: 2015Q4

REPORT INFORMATION
  Report Type: Spontaneous
  Country: AR (occurrence: AR)
  Receive Date: 20151220
  Receipt Date: 20151220
  Transmission Date: 20160305
  Serious: Yes (Hospitalization)
  Sender: FDA-Public Use
  Company Number: AR-ROCHE-1679472

PATIENT
  Age: 66 Year
  Sex: Male

DRUGS (2)
  1. RITUXIMAB [Suspect]
     Active Substance: RITUXIMAB
     Indication: RHEUMATOID ARTHRITIS
     Dosage: 2 DOSES AND A MONTH INTERVAL
     Route: 065
  2. MEPREDNISONE [Concomitant]
     Active Substance: MEPREDNISONE
     Route: 065

REACTIONS (1)
  - Interstitial lung disease [Recovering/Resolving]
